FAERS Safety Report 6011383-3 (Version None)
Quarter: 2008Q4

REPORT INFORMATION
  Report Type: 
  Country: None (occurrence: None)
  Receive Date: 20081217
  Receipt Date: 20081217
  Transmission Date: 20090506
  Serious: Yes (Other)
  Sender: FDA-Public Use
  Company Number: None

PATIENT
  Age: 52 Year
  Sex: Female
  Weight: 48.5349 kg

DRUGS (5)
  1. CHLOROQUINE PHOSPHATE [Suspect]
     Indication: MALARIA PROPHYLAXIS
     Dosage: 500MG  1X WEEKLY X 8 WEEK PO
     Route: 048
     Dates: start: 20081123, end: 20081207
  2. ALBUTEROL [Concomitant]
  3. LEVOXYL [Concomitant]
  4. ASPIRIN [Concomitant]
  5. GLYCOLAX [Concomitant]

REACTIONS (11)
  - ANAPHYLACTIC SHOCK [None]
  - DEHYDRATION [None]
  - DERMATITIS CONTACT [None]
  - EYE DISCHARGE [None]
  - EYE PRURITUS [None]
  - EYE SWELLING [None]
  - FAECALOMA [None]
  - OEDEMA PERIPHERAL [None]
  - PRODUCTIVE COUGH [None]
  - RESPIRATORY TRACT INFECTION [None]
  - VISUAL ACUITY REDUCED [None]
